FAERS Safety Report 10706959 (Version 3)
Quarter: 2015Q1

REPORT INFORMATION
  Report Type: Report from Study
  Country: US (occurrence: US)
  Receive Date: 20150113
  Receipt Date: 20150203
  Transmission Date: 20150721
  Serious: Yes (Life-Threatening, Hospitalization)
  Sender: FDA-Public Use
  Company Number: US-ELI_LILLY_AND_COMPANY-US201412010258

PATIENT
  Age: 73 Year
  Sex: Female
  Weight: 68.7 kg

DRUGS (7)
  1. ONDANSETRON [Concomitant]
     Active Substance: ONDANSETRON
     Indication: ANTIEMETIC SUPPORTIVE CARE
     Dosage: UNK, PRN
     Dates: start: 20141201
  2. LORAZEPAM. [Concomitant]
     Active Substance: LORAZEPAM
     Indication: ANXIETY
  3. RAMUCIRUMAB [Suspect]
     Active Substance: RAMUCIRUMAB
     Indication: NON-SMALL CELL LUNG CANCER
     Dosage: 10 MG/KG, CYCLICAL
     Route: 042
     Dates: start: 20141202, end: 20141202
  4. LOMOTIL                            /00384302/ [Concomitant]
     Indication: DIARRHOEA
     Dosage: UNK UNK, PRN
     Dates: start: 20141013
  5. LORAZEPAM. [Concomitant]
     Active Substance: LORAZEPAM
     Indication: ANTIEMETIC SUPPORTIVE CARE
     Dosage: UNK, PRN
     Dates: start: 20141201
  6. ABEMACICLIB [Suspect]
     Active Substance: ABEMACICLIB
     Indication: NON-SMALL CELL LUNG CANCER
     Dosage: 200 MG, BID
     Route: 048
     Dates: start: 20141202, end: 20141226
  7. LOSARTAN AND HYDROCHLOROTHIAZIDE [Concomitant]
     Active Substance: HYDROCHLOROTHIAZIDE\LOSARTAN POTASSIUM
     Dosage: UNK
     Dates: start: 20140604, end: 20150113

REACTIONS (4)
  - Cardiogenic shock [Recovered/Resolved]
  - Small intestinal obstruction [Recovered/Resolved]
  - Diarrhoea [Recovered/Resolved]
  - Stress cardiomyopathy [Recovering/Resolving]

NARRATIVE: CASE EVENT DATE: 20141228
